FAERS Safety Report 7558083-6 (Version None)
Quarter: 2011Q2

REPORT INFORMATION
  Report Type: 
  Country: None (occurrence: None)
  Receive Date: 20110620
  Receipt Date: 20110609
  Transmission Date: 20111010
  Serious: Yes (Other)
  Sender: FDA-Public Use
  Company Number: PL-UCBSA-035185

PATIENT
  Sex: Male
  Weight: 70 kg

DRUGS (1)
  1. KEPPRA [Suspect]
     Indication: EPILEPSY
     Dosage: 1000 (UNITS UNSPECIFIED) TWO TIMES DAILY
     Route: 048
     Dates: start: 20100801

REACTIONS (1)
  - ERECTILE DYSFUNCTION [None]
